FAERS Safety Report 4315953-X (Version None)
Quarter: 2004Q1

REPORT INFORMATION
  Report Type: 
  Country: None (occurrence: None)
  Receive Date: 20040310
  Receipt Date: 20040305
  Transmission Date: 20041129
  Serious: Yes (Other)
  Sender: FDA-Public Use
  Company Number: STA-AE-04-MTX-093

PATIENT
  Age: 13 Year
  Sex: Male

DRUGS (6)
  1. METHOTREXATE [Suspect]
     Indication: JUVENILE ARTHRITIS
     Dosage: 7.5 MG 1X PER 1 WK, ORAL
     Route: 048
     Dates: start: 19980301, end: 19900501
  2. METHOTREXATE [Suspect]
     Indication: PSORIATIC ARTHROPATHY
     Dosage: 7.5 MG 1X PER 1 WK, ORAL
     Route: 048
     Dates: start: 19980301, end: 19900501
  3. METHOTREXATE [Suspect]
     Indication: JUVENILE ARTHRITIS
     Dosage: 5 MG 1X PER 1 WK, ORAL
     Route: 048
     Dates: start: 19900501, end: 19960201
  4. METHOTREXATE [Suspect]
     Indication: PSORIATIC ARTHROPATHY
     Dosage: 5 MG 1X PER 1 WK, ORAL
     Route: 048
     Dates: start: 19900501, end: 19960201
  5. METHOTREXATE [Suspect]
     Indication: PSORIATIC ARTHROPATHY
     Dosage: 2.5 MG 1X PER 1 WK, ORAL
     Route: 048
     Dates: start: 19960201, end: 19970601
  6. NAPROXEN [Concomitant]

REACTIONS (3)
  - CARDIOMEGALY [None]
  - CARDIOMYOPATHY [None]
  - VISUAL ACUITY REDUCED [None]
